FAERS Safety Report 21082244 (Version 3)
Quarter: 2022Q3

REPORT INFORMATION
  Report Type: Spontaneous
  Country: IL (occurrence: IL)
  Receive Date: 20220714
  Receipt Date: 20220725
  Transmission Date: 20221027
  Serious: Yes (Other)
  Sender: FDA-Public Use
  Company Number: IL-009507513-2207ISR003165

PATIENT
  Sex: Female

DRUGS (2)
  1. MOLNUPIRAVIR [Suspect]
     Active Substance: MOLNUPIRAVIR
     Indication: COVID-19 treatment
     Dosage: 3 DOSES
     Route: 048
     Dates: start: 202203, end: 2022
  2. MOLNUPIRAVIR [Suspect]
     Active Substance: MOLNUPIRAVIR
     Dosage: UNK
     Route: 048
     Dates: start: 20220705

REACTIONS (9)
  - Diabetes mellitus [Unknown]
  - Chest discomfort [Unknown]
  - Heart rate increased [Unknown]
  - SARS-CoV-2 test positive [Unknown]
  - Dizziness [Unknown]
  - COVID-19 [Unknown]
  - Product dose omission issue [Unknown]
  - Product availability issue [Unknown]
  - Incorrect dose administered [Unknown]

NARRATIVE: CASE EVENT DATE: 20220101
